FAERS Safety Report 11658962 (Version 1)
Quarter: 2015Q4

REPORT INFORMATION
  Report Type: Spontaneous
  Country: US (occurrence: None)
  Receive Date: 20151023
  Receipt Date: 20151023
  Transmission Date: 20160304
  Serious: Yes (Disabling)
  Sender: FDA-Public Use
  Company Number: None

PATIENT
  Age: 36 Year
  Sex: Female
  Weight: 80.74 kg

DRUGS (3)
  1. TOPROL XL [Concomitant]
     Active Substance: METOPROLOL SUCCINATE
  2. MULTIVITAMINS [Concomitant]
     Active Substance: VITAMINS
  3. PARAGARD T 380A [Suspect]
     Active Substance: COPPER

REACTIONS (8)
  - Uterine disorder [None]
  - Uterine tenderness [None]
  - Medical device complication [None]
  - Menorrhagia [None]
  - Abdominal pain lower [None]
  - Dysmenorrhoea [None]
  - Dyspareunia [None]
  - Ovarian cyst [None]

NARRATIVE: CASE EVENT DATE: 20150924
